FAERS Safety Report 7540309-6 (Version None)
Quarter: 2011Q2

REPORT INFORMATION
  Report Type: 
  Country: None (occurrence: None)
  Receive Date: 20110610
  Receipt Date: 20110531
  Transmission Date: 20111010
  Serious: Yes (Other)
  Sender: FDA-Public Use
  Company Number: PHHY2011SE48356

PATIENT
  Age: 66 Year
  Sex: Female

DRUGS (5)
  1. NEORECORMON [Concomitant]
  2. NEXIUM [Concomitant]
  3. BEHEPAN [Concomitant]
  4. GLEEVEC [Suspect]
     Indication: CHRONIC MYELOID LEUKAEMIA
     Dosage: 400 MG, DAILY
  5. DUROFERON [Concomitant]

REACTIONS (2)
  - PALATAL DISORDER [None]
  - PIGMENTATION BUCCAL [None]
